FAERS Safety Report 24295766 (Version 2)
Quarter: 2024Q4

REPORT INFORMATION
  Report Type: Spontaneous
  Country: JP (occurrence: JP)
  Receive Date: 20240908
  Receipt Date: 20241129
  Transmission Date: 20250114
  Serious: Yes (Other)
  Sender: TAKEDA
  Company Number: JP-TAKEDA-2024TJP013159

PATIENT
  Age: 8 Decade
  Sex: Female

DRUGS (6)
  1. ALUNBRIG [Suspect]
     Active Substance: BRIGATINIB
     Indication: Lung adenocarcinoma
     Dosage: UNK
  2. PREDNISOLONE [Concomitant]
     Active Substance: PREDNISOLONE
     Indication: Asthma
     Dosage: 30 MILLIGRAM
  3. PREDNISOLONE [Concomitant]
     Active Substance: PREDNISOLONE
     Indication: Otitis media
     Dosage: UNK
  4. PREDNISOLONE [Concomitant]
     Active Substance: PREDNISOLONE
     Dosage: 2.5 MILLIGRAM
  5. PREDNISOLONE [Concomitant]
     Active Substance: PREDNISOLONE
     Dosage: 5 MILLIGRAM
  6. BENRALIZUMAB [Concomitant]
     Active Substance: BENRALIZUMAB
     Indication: Asthma
     Dosage: UNK

REACTIONS (4)
  - Asthma [Recovered/Resolved]
  - Respiratory failure [Recovered/Resolved]
  - Diarrhoea [Recovered/Resolved]
  - Vomiting [Recovered/Resolved]
